FAERS Safety Report 9641802 (Version 3)
Quarter: 2015Q4

REPORT INFORMATION
  Report Type: Report from Study
  Country: US (occurrence: US)
  Receive Date: 20131023
  Receipt Date: 20151002
  Transmission Date: 20160305
  Serious: Yes (Other)
  Sender: FDA-Public Use
  Company Number: US-ROCHE-1291575

PATIENT
  Age: 53 Year
  Sex: Female
  Weight: 118.04 kg

DRUGS (6)
  1. COUMADIN [Concomitant]
     Active Substance: WARFARIN SODIUM
  2. SYNTHROID [Concomitant]
     Active Substance: LEVOTHYROXINE SODIUM
  3. WARFARIN [Concomitant]
     Active Substance: WARFARIN
  4. RITUXAN [Suspect]
     Active Substance: RITUXIMAB
     Indication: PRODUCT USED FOR UNKNOWN INDICATION
     Route: 065
  5. TRILEPTAL [Concomitant]
     Active Substance: OXCARBAZEPINE
  6. ACTEMRA [Suspect]
     Active Substance: TOCILIZUMAB
     Indication: RHEUMATOID ARTHRITIS
     Dosage: THIS DRUG WAS STARTED A WHILE AGO
     Route: 042

REACTIONS (12)
  - Lower limb fracture [Not Recovered/Not Resolved]
  - Drug ineffective [Unknown]
  - Blood cholesterol increased [Unknown]
  - Rash [Unknown]
  - Blood triglycerides increased [Unknown]
  - Deep vein thrombosis [Unknown]
  - Lymphocyte count abnormal [Unknown]
  - Pain in extremity [Unknown]
  - White blood cell count decreased [Unknown]
  - Therapeutic response decreased [Unknown]
  - Hepatic enzyme increased [Unknown]
  - Weight increased [Unknown]

NARRATIVE: CASE EVENT DATE: 20131206
